FAERS Safety Report 7557866-6 (Version None)
Quarter: 2011Q2

REPORT INFORMATION
  Report Type: 
  Country: None (occurrence: None)
  Receive Date: 20110613
  Receipt Date: 20110607
  Transmission Date: 20111010
  Serious: Yes (Other)
  Sender: FDA-Public Use
  Company Number: 2011SP026087

PATIENT
  Sex: Female

DRUGS (1)
  1. IMPLANON [Suspect]
     Indication: PRODUCT USED FOR UNKNOWN INDICATION
     Dosage: 1 DF
     Dates: end: 20110101

REACTIONS (4)
  - COMPLICATION OF DEVICE REMOVAL [None]
  - PAIN [None]
  - IATROGENIC INJURY [None]
  - ULNAR NERVE INJURY [None]
